FAERS Safety Report 6186749-1 (Version None)
Quarter: 2009Q2

REPORT INFORMATION
  Report Type: 
  Country: None (occurrence: None)
  Receive Date: 20090512
  Receipt Date: 20090507
  Transmission Date: 20091009
  Serious: Yes (Disabling)
  Sender: FDA-Public Use
  Company Number: BE-ASTRAZENECA-2009AC01200

PATIENT
  Age: 45 Year
  Sex: Male
  Weight: 84 kg

DRUGS (6)
  1. CRESTOR [Suspect]
     Indication: HYPERCHOLESTEROLAEMIA
     Route: 048
     Dates: start: 20080601
  2. CRESTOR [Suspect]
     Route: 048
  3. APROVEL [Concomitant]
     Indication: HYPERTENSION
     Route: 048
     Dates: start: 20070101
  4. ZURCAL [Concomitant]
  5. ASAFLOW [Concomitant]
     Indication: PROPHYLAXIS
     Route: 048
     Dates: start: 20070101
  6. LEVOTHYROXINE SODIUM [Concomitant]
     Indication: HYPERTHYROIDISM
     Dosage: 75
     Route: 048
     Dates: start: 20040101

REACTIONS (2)
  - ARTHRITIS [None]
  - PERIARTHRITIS [None]
